FAERS Safety Report 5370646-5 (Version None)
Quarter: 2007Q2

REPORT INFORMATION
  Report Type: 
  Country: None (occurrence: None)
  Receive Date: 20070626
  Receipt Date: 20070614
  Transmission Date: 20071010
  Serious: Yes (Other)
  Sender: FDA-Public Use
  Company Number: US-ROCHE-473344

PATIENT
  Age: 40 Year
  Sex: Female

DRUGS (1)
  1. ACCUTANE [Suspect]
     Indication: DRUG USE FOR UNKNOWN INDICATION
     Dosage: CAPSULE STRENGTH WAS REPORTED AS 40. DOSING REGIMEN: DAILY. LAST PRESCRIPTION WAS RECEIVED ON 21 OC+
     Route: 048
     Dates: start: 20060928, end: 20061124

REACTIONS (2)
  - ABORTION INDUCED [None]
  - NO ADVERSE EFFECT [None]
